FAERS Safety Report 8058799-1 (Version None)
Quarter: 2012Q1

REPORT INFORMATION
  Report Type: 
  Country: None (occurrence: None)
  Receive Date: 20120120
  Receipt Date: 20120110
  Transmission Date: 20120608
  Serious: Yes (Hospitalization, Other)
  Sender: FDA-Public Use
  Company Number: US-BAYER-2011-097377

PATIENT
  Age: 19 Year
  Sex: Female
  Weight: 56.689 kg

DRUGS (3)
  1. DROSPIRENONE AND ETHINYL ESTRADIOL [Suspect]
     Indication: CONTRACEPTION
     Dosage: UNK
     Dates: start: 20060504, end: 20090401
  2. PREVACID [Concomitant]
  3. YASMIN [Suspect]
     Indication: CONTRACEPTION
     Dosage: UNK
     Dates: start: 20060504, end: 20090401

REACTIONS (10)
  - ABDOMINAL PAIN UPPER [None]
  - ANXIETY [None]
  - CHOLECYSTITIS [None]
  - GALLBLADDER DISORDER [None]
  - CONSTIPATION [None]
  - DIARRHOEA [None]
  - INJURY [None]
  - CHOLELITHIASIS [None]
  - PAIN [None]
  - ANHEDONIA [None]
